FAERS Safety Report 9427730 (Version 1)
Quarter: 2013Q3

REPORT INFORMATION
  Report Type: Report from Study
  Country: US (occurrence: US)
  Receive Date: 20130730
  Receipt Date: 20130730
  Transmission Date: 20140515
  Serious: No
  Sender: FDA-Public Use
  Company Number: US-ABBOTT-12P-163-0999382-00

PATIENT
  Age: 55 Year
  Sex: Male
  Weight: 92.62 kg

DRUGS (9)
  1. NIASPAN (COATED) [Suspect]
     Indication: BLOOD CHOLESTEROL INCREASED
     Dates: start: 201208
  2. NIASPAN (COATED) [Suspect]
     Dates: start: 201209, end: 201209
  3. LIPITOR [Concomitant]
     Indication: BLOOD CHOLESTEROL INCREASED
  4. METFORMIN [Concomitant]
     Indication: DIABETES MELLITUS
  5. BABY ASPIRIN [Concomitant]
     Indication: CARDIAC DISORDER
  6. GLIPIZIDE [Concomitant]
     Indication: DIABETES MELLITUS
  7. METOPROLOL [Concomitant]
     Indication: HYPERTENSION
  8. CRESTOR [Concomitant]
     Indication: BLOOD CHOLESTEROL INCREASED
  9. FAMOTIDINE [Concomitant]
     Indication: GASTRIC DISORDER

REACTIONS (5)
  - Back pain [Not Recovered/Not Resolved]
  - Flushing [Not Recovered/Not Resolved]
  - Skin burning sensation [Not Recovered/Not Resolved]
  - Skin burning sensation [Not Recovered/Not Resolved]
  - Cough [Not Recovered/Not Resolved]
